FAERS Safety Report 14789703 (Version 1)
Quarter: 2018Q2

REPORT INFORMATION
  Report Type: Spontaneous
  Country: FR (occurrence: FR)
  Receive Date: 20180423
  Receipt Date: 20180423
  Transmission Date: 20180711
  Serious: Yes (Other)
  Sender: FDA-Public Use
  Company Number: FR-MERCK KGAA-2046265

PATIENT

DRUGS (1)
  1. NOVOTHYROX [Suspect]
     Active Substance: LEVOTHYROXINE SODIUM
     Indication: HYPOTHYROIDISM

REACTIONS (22)
  - Multiple sclerosis [Recovered/Resolved]
  - Oropharyngeal pain [None]
  - Depression [None]
  - Blood thyroid stimulating hormone increased [None]
  - Gait disturbance [Recovered/Resolved]
  - Palpitations [None]
  - Odynophagia [None]
  - Musculoskeletal stiffness [None]
  - Stress [None]
  - Fatigue [None]
  - Aggression [None]
  - Choking [None]
  - Loss of personal independence in daily activities [None]
  - Anxiety [None]
  - Pain in extremity [None]
  - Insomnia [None]
  - Housebound [None]
  - Cerebrovascular accident [Recovered/Resolved]
  - Impaired driving ability [None]
  - Visual field defect [None]
  - Vision blurred [None]
  - Crying [None]

NARRATIVE: CASE EVENT DATE: 201706
